FAERS Safety Report 12809479 (Version 4)
Quarter: 2020Q1

REPORT INFORMATION
  Report Type: Spontaneous
  Country: BE (occurrence: BE)
  Receive Date: 20161005
  Receipt Date: 20200122
  Transmission Date: 20200409
  Serious: Yes (Hospitalization, Other)
  Sender: FDA-Public Use
  Company Number: BE-TAKEDA-2016TUS017062

PATIENT
  Age: 30 Year
  Sex: Male
  Weight: 105 kg

DRUGS (1)
  1. ENTYVIO [Suspect]
     Active Substance: VEDOLIZUMAB
     Indication: CROHN^S DISEASE
     Dosage: 300 MILLIGRAM
     Route: 042
     Dates: start: 201604

REACTIONS (3)
  - Intestinal obstruction [Unknown]
  - Enterobacter sepsis [Unknown]
  - Therapeutic response decreased [Unknown]
